FAERS Safety Report 4335399-8 (Version None)
Quarter: 2004Q2

REPORT INFORMATION
  Report Type: 
  Country: None (occurrence: None)
  Receive Date: 20040408
  Receipt Date: 20040408
  Transmission Date: 20050107
  Serious: Yes (Hospitalization)
  Sender: FDA-Public Use
  Company Number: None

PATIENT
  Age: 42 Year
  Sex: Female
  Weight: 64.8 kg

DRUGS (11)
  1. IRINOTECAN 50 MG/M2 [Suspect]
     Indication: PANCREATIC CARCINOMA
     Dosage: 82 MG IV
     Route: 042
     Dates: start: 20040326
  2. DOCETAXEL 35 MG/M2 [Suspect]
     Dosage: 57 MG IV
     Route: 042
     Dates: start: 20040401
  3. ZOFRAN [Concomitant]
  4. DECADRON [Concomitant]
  5. ENOXAPARIN SODIUM [Concomitant]
  6. COZAAR [Concomitant]
  7. CREATIN [Concomitant]
  8. SYNTHROID [Concomitant]
  9. LIPITOR [Concomitant]
  10. KCL TAB [Concomitant]
  11. VICODIN [Concomitant]

REACTIONS (4)
  - DIARRHOEA [None]
  - MUSCLE SPASMS [None]
  - NAUSEA [None]
  - VOMITING [None]
